FAERS Safety Report 14800108 (Version 1)
Quarter: 2018Q2

REPORT INFORMATION
  Report Type: Spontaneous
  Country: US (occurrence: US)
  Receive Date: 20180424
  Receipt Date: 20180424
  Transmission Date: 20180711
  Serious: Yes (Life-Threatening)
  Sender: FDA-Public Use
  Company Number: PHHY2018US065165

PATIENT

DRUGS (4)
  1. CAMPATH [Suspect]
     Active Substance: ALEMTUZUMAB
     Dosage: 30 MG, UNK (STEPPED UP FROM  3 TO 30 MG DURING THE FIRST WEEK)
     Route: 042
  2. FILGRASTIM [Suspect]
     Active Substance: FILGRASTIM
     Indication: PROPHYLAXIS
     Dosage: 5 UG/KG, QD
     Route: 058
  3. CAMPATH [Suspect]
     Active Substance: ALEMTUZUMAB
     Indication: CHRONIC LYMPHOCYTIC LEUKAEMIA RECURRENT
     Dosage: 3 MG, UNK
     Route: 042
  4. CAMPATH [Suspect]
     Active Substance: ALEMTUZUMAB
     Dosage: 30 MG, QW3
     Route: 042

REACTIONS (1)
  - Cytomegalovirus infection [Recovering/Resolving]
